FAERS Safety Report 8186464-9 (Version None)
Quarter: 2012Q1

REPORT INFORMATION
  Report Type: 
  Country: None (occurrence: None)
  Receive Date: 20120302
  Receipt Date: 20120302
  Transmission Date: 20120608
  Serious: Yes (Other)
  Sender: FDA-Public Use
  Company Number: None

PATIENT
  Sex: Female
  Weight: 54.1 kg

DRUGS (1)
  1. RECLAST [Suspect]
     Indication: OSTEOPOROSIS
     Dosage: 5MG/100 ML 1 DOSE INTRAVENOUS
     Route: 042
     Dates: start: 20120207

REACTIONS (3)
  - DYSPNOEA [None]
  - RIB FRACTURE [None]
  - BACK PAIN [None]
